FAERS Safety Report 20038721 (Version 1)
Quarter: 2021Q4

REPORT INFORMATION
  Report Type: Spontaneous
  Country: IN (occurrence: IN)
  Receive Date: 20211105
  Receipt Date: 20211105
  Transmission Date: 20220303
  Serious: Yes (Other)
  Sender: FDA-Public Use
  Company Number: IN-PFIZER INC-202101330833

PATIENT
  Age: 23 Year
  Sex: Female

DRUGS (4)
  1. PREDNISOLONE [Suspect]
     Active Substance: PREDNISOLONE
     Indication: Immune thrombocytopenia
     Dosage: 40 MG, DAILY (DOSE WAS TAPERED GRADUALLY )
  2. PREDNISOLONE [Suspect]
     Active Substance: PREDNISOLONE
     Dosage: 60 MG, DAILY
  3. PREDNISOLONE [Suspect]
     Active Substance: PREDNISOLONE
     Dosage: 30 MG, DAILY (TAPERED BY 5 MG EVERY WEEK)
     Route: 048
  4. METHYLPREDNISOLONE ACETATE [Suspect]
     Active Substance: METHYLPREDNISOLONE ACETATE
     Indication: Immune thrombocytopenia
     Dosage: 1 G, 1X/DAY
     Route: 030

REACTIONS (2)
  - Maternal exposure during pregnancy [Unknown]
  - Premature rupture of membranes [Unknown]
